FAERS Safety Report 10255669 (Version 1)
Quarter: 2014Q2

REPORT INFORMATION
  Report Type: Report from Study
  Country: US (occurrence: US)
  Receive Date: 20140624
  Receipt Date: 20140624
  Transmission Date: 20141212
  Serious: Yes (Hospitalization)
  Sender: FDA-Public Use
  Company Number: US-SA-2014SA079673

PATIENT
  Age: 47 Year
  Sex: Female

DRUGS (3)
  1. LANTUS [Suspect]
     Indication: DIABETES MELLITUS
     Dosage: DOSE:45 UNIT(S)
     Route: 065
  2. HUMALOG [Concomitant]
     Dosage: 10 UNITS WITH BREAKFAST AND 13 UNITS WITH LUNCH AND DINNER
  3. HUMALOG [Concomitant]
     Dosage: DOSE:35 UNIT(S)

REACTIONS (4)
  - Cerebrovascular accident [Recovered/Resolved]
  - Memory impairment [Recovered/Resolved]
  - Cardiac operation [Unknown]
  - Drug administration error [Unknown]
